FAERS Safety Report 11567618 (Version 4)
Quarter: 2015Q4

REPORT INFORMATION
  Report Type: Spontaneous
  Country: US (occurrence: US)
  Receive Date: 20150929
  Receipt Date: 20151105
  Transmission Date: 20160304
  Serious: Yes (Other)
  Sender: FDA-Public Use
  Company Number: US-DRREDDYS-USA/USA/15/0052912

PATIENT
  Age: 37 Year
  Sex: Female

DRUGS (1)
  1. ZENATANE [Suspect]
     Active Substance: ISOTRETINOIN
     Indication: PRODUCT USED FOR UNKNOWN INDICATION
     Route: 048
     Dates: start: 20150824, end: 201509

REACTIONS (5)
  - Exposure during pregnancy [Unknown]
  - Abortion [Unknown]
  - Ectopic pregnancy [Unknown]
  - Victim of sexual abuse [None]
  - Unintended pregnancy [None]

NARRATIVE: CASE EVENT DATE: 20150922
